FAERS Safety Report 17648669 (Version 1)
Quarter: 2020Q2

REPORT INFORMATION
  Report Type: Spontaneous
  Country: FR (occurrence: FR)
  Receive Date: 20200408
  Receipt Date: 20200408
  Transmission Date: 20200713
  Serious: Yes (Hospitalization)
  Sender: FDA-Public Use
  Company Number: FR-PURDUE PHARMA-GBR-2020-0076082

PATIENT
  Age: 8 Year
  Sex: Male
  Weight: 43 kg

DRUGS (2)
  1. KETAMINE [Suspect]
     Active Substance: KETAMINE
     Indication: PAIN
     Dosage: UNK (INCONNUE)
     Route: 042
     Dates: start: 20191217, end: 20191218
  2. OXYNORM [Suspect]
     Active Substance: OXYCODONE HYDROCHLORIDE
     Indication: PAIN
     Dosage: UNK (INCONNUE)
     Route: 040
     Dates: start: 20191217, end: 20191220

REACTIONS (1)
  - Hallucination [Recovered/Resolved]

NARRATIVE: CASE EVENT DATE: 20191217
